FAERS Safety Report 9783220 (Version 1)
Quarter: 2013Q4

REPORT INFORMATION
  Report Type: Spontaneous
  Country: US (occurrence: None)
  Receive Date: 20131223
  Receipt Date: 20131223
  Transmission Date: 20140711
  Serious: Yes (Other)
  Sender: FDA-Public Use
  Company Number: EUS-2012-00096

PATIENT
  Sex: Male

DRUGS (2)
  1. ERWINASE (ASPARAGINASE) [Suspect]
     Indication: ACUTE LYMPHOCYTIC LEUKAEMIA
     Route: 042
     Dates: start: 20100607, end: 20101118
  2. DEXAMETHASONE [Concomitant]

REACTIONS (2)
  - Hyperammonaemia [None]
  - Encephalopathy [None]
